FAERS Safety Report 17643901 (Version 1)
Quarter: 2020Q2

REPORT INFORMATION
  Report Type: Spontaneous
  Country: US (occurrence: US)
  Receive Date: 20200408
  Receipt Date: 20200408
  Transmission Date: 20200713
  Serious: Yes (Other)
  Sender: FDA-Public Use
  Company Number: US-ALLERGAN-2000050US

PATIENT
  Age: 22 Year
  Sex: Female

DRUGS (1)
  1. LILETTA [Suspect]
     Active Substance: LEVONORGESTREL
     Indication: CONTRACEPTION
     Dosage: 52 MG, SINGLE
     Route: 015
     Dates: start: 20191217, end: 20191217

REACTIONS (3)
  - Uterine perforation [Unknown]
  - Procedural haemorrhage [Recovered/Resolved]
  - Device expulsion [Unknown]

NARRATIVE: CASE EVENT DATE: 20191217
